FAERS Safety Report 7702752-1 (Version None)
Quarter: 2011Q3

REPORT INFORMATION
  Report Type: 
  Country: None (occurrence: None)
  Receive Date: 20110823
  Receipt Date: 20110705
  Transmission Date: 20111222
  Serious: No
  Sender: FDA-Public Use
  Company Number: US-BAYER-2011-058652

PATIENT
  Age: 34 Year
  Sex: Female

DRUGS (2)
  1. MIRENA [Suspect]
     Indication: MENORRHAGIA
  2. MIRENA [Suspect]
     Indication: CONTRACEPTION
     Dosage: 20 MCG/24HR, CONT
     Route: 015
     Dates: start: 20110105

REACTIONS (6)
  - UNEVALUABLE EVENT [None]
  - FUNGAL INFECTION [None]
  - VULVOVAGINAL BURNING SENSATION [None]
  - OVARIAN CYST [None]
  - VAGINITIS BACTERIAL [None]
  - VAGINAL DISCHARGE [None]
